FAERS Safety Report 8451271-6 (Version None)
Quarter: 2012Q2

REPORT INFORMATION
  Report Type: 
  Country: None (occurrence: None)
  Receive Date: 20120620
  Receipt Date: 20120223
  Transmission Date: 20120825
  Serious: No
  Sender: FDA-Public Use
  Company Number: US-VERTEX PHARMACEUTICALS INC.-AE-2012-002199

PATIENT
  Sex: Female
  Weight: 61.744 kg

DRUGS (3)
  1. PEGASYS [Concomitant]
     Indication: HEPATITIS C
     Route: 058
     Dates: start: 20111230, end: 20120213
  2. INCIVEK [Suspect]
     Indication: HEPATITIS C
     Route: 048
     Dates: start: 20111230, end: 20120212
  3. RIBASPHERE [Concomitant]
     Indication: HEPATITIS C
     Route: 048
     Dates: start: 20111230, end: 20120213

REACTIONS (9)
  - RASH MACULO-PAPULAR [None]
  - PLATELET COUNT DECREASED [None]
  - SWELLING FACE [None]
  - URTICARIA [None]
  - HAEMOGLOBIN DECREASED [None]
  - SKIN EXFOLIATION [None]
  - WHITE BLOOD CELL COUNT DECREASED [None]
  - ERYTHEMA [None]
  - PRURITUS [None]
